FAERS Safety Report 7860735-5 (Version None)
Quarter: 2011Q4

REPORT INFORMATION
  Report Type: 
  Country: None (occurrence: None)
  Receive Date: 20111027
  Receipt Date: 20111021
  Transmission Date: 20120403
  Serious: Yes (Death, Other)
  Sender: FDA-Public Use
  Company Number: JP-ELI_LILLY_AND_COMPANY-JP201110006300

PATIENT
  Sex: Male
  Weight: 59 kg

DRUGS (5)
  1. ZANTAC [Concomitant]
     Indication: PROPHYLAXIS
     Dosage: 150 MG, BID
     Route: 048
     Dates: start: 20050623
  2. BERIZYM [Concomitant]
     Indication: DYSPEPSIA
     Dosage: 1 G, TID
     Route: 048
     Dates: start: 20031226
  3. URSO 250 [Concomitant]
     Dosage: 100 MG, TID
     Route: 048
     Dates: start: 20031213
  4. GLUFAST [Concomitant]
     Indication: DIABETES MELLITUS
     Dosage: 10 MG, BID
     Route: 048
     Dates: start: 20090122
  5. GEMZAR [Suspect]
     Indication: PANCREATIC CARCINOMA STAGE III
     Dosage: 1600 MG, UNK
     Route: 042
     Dates: start: 20091119, end: 20101004

REACTIONS (6)
  - INTERSTITIAL LUNG DISEASE [None]
  - ASCITES [None]
  - CARDIAC FAILURE [None]
  - PULMONARY CONGESTION [None]
  - PERICARDIAL EFFUSION [None]
  - NEOPLASM PROGRESSION [None]
